FAERS Safety Report 18412532 (Version 7)
Quarter: 2021Q1

REPORT INFORMATION
  Report Type: Report from Study
  Country: AU (occurrence: AU)
  Receive Date: 20201021
  Receipt Date: 20210315
  Transmission Date: 20210419
  Serious: Yes (Life-Threatening, Hospitalization, Other)
  Sender: FDA-Public Use
  Company Number: AU-CELGENEUS-AUS-20201004463

PATIENT
  Age: 63 Year
  Sex: Male

DRUGS (23)
  1. PARACETAMOL [Concomitant]
     Active Substance: ACETAMINOPHEN
     Indication: PAIN IN EXTREMITY
     Route: 048
     Dates: start: 202008, end: 20201011
  2. VALTREX [Concomitant]
     Active Substance: VALACYCLOVIR HYDROCHLORIDE
     Indication: ANTIVIRAL PROPHYLAXIS
     Dosage: 500 MILLIGRAM
     Route: 048
     Dates: start: 2016, end: 20201019
  3. ALLOPURINOL. [Concomitant]
     Active Substance: ALLOPURINOL
     Indication: PROPHYLAXIS
     Dosage: 300 MILLIGRAM
     Route: 048
     Dates: start: 2018, end: 20201016
  4. METOPROLOL. [Concomitant]
     Active Substance: METOPROLOL
     Dosage: 225 MILLIGRAM
     Route: 048
     Dates: start: 20201015, end: 20201019
  5. TEMAZEPAM. [Concomitant]
     Active Substance: TEMAZEPAM
     Indication: INSOMNIA
     Route: 048
     Dates: start: 2018, end: 20201010
  6. METOPROLOL. [Concomitant]
     Active Substance: METOPROLOL
     Dosage: 75 MILLIGRAM
     Route: 048
     Dates: start: 20201013, end: 20201013
  7. METOPROLOL. [Concomitant]
     Active Substance: METOPROLOL
     Dosage: 25 MILLIGRAM
     Route: 048
     Dates: start: 20201015, end: 20201015
  8. DEXAMETHASONE. [Suspect]
     Active Substance: DEXAMETHASONE
     Indication: PLASMA CELL MYELOMA
     Dosage: UNKNOWN
     Route: 065
     Dates: start: 20200923, end: 20201007
  9. BISOPROLOL [Concomitant]
     Active Substance: BISOPROLOL
     Indication: MITRAL VALVE DISEASE
     Dosage: 5 MILLIGRAM
     Route: 048
     Dates: start: 2016, end: 20201010
  10. MAGNESIUM SULFATE. [Concomitant]
     Active Substance: MAGNESIUM SULFATE
     Indication: NEUTROPENIC SEPSIS
     Route: 041
     Dates: start: 20201012, end: 20201012
  11. POMALIDOMIDE [Suspect]
     Active Substance: POMALIDOMIDE
     Indication: PLASMA CELL MYELOMA
     Route: 048
     Dates: start: 20200923, end: 20201011
  12. BACTRIM [Concomitant]
     Active Substance: SULFAMETHOXAZOLE\TRIMETHOPRIM
     Indication: PROPHYLAXIS
     Dosage: 2 DOSE UNSPECIFIED
     Route: 048
     Dates: start: 2016, end: 20201015
  13. PERINDOPRIL [Concomitant]
     Active Substance: PERINDOPRIL
     Indication: HYPERTENSION
     Dosage: 2.5 MILLIGRAM
     Route: 048
     Dates: start: 2016, end: 20201010
  14. METOCLOPRAMIDE. [Concomitant]
     Active Substance: METOCLOPRAMIDE
     Indication: NEUTROPENIC SEPSIS
     Route: 048
     Dates: start: 2018, end: 20201010
  15. XARELTO [Concomitant]
     Active Substance: RIVAROXABAN
     Indication: THROMBOSIS PROPHYLAXIS
     Route: 048
     Dates: start: 2017, end: 20201010
  16. METOCLOPRAMIDE. [Concomitant]
     Active Substance: METOCLOPRAMIDE
     Indication: NAUSEA
     Route: 048
     Dates: start: 20201013, end: 20201017
  17. FUROSEMIDE. [Concomitant]
     Active Substance: FUROSEMIDE
     Indication: ACUTE KIDNEY INJURY
     Route: 041
     Dates: start: 20201022, end: 20201103
  18. METOPROLOL. [Concomitant]
     Active Substance: METOPROLOL
     Dosage: 150 MILLIGRAM
     Route: 048
     Dates: start: 20201013, end: 20201015
  19. MAGNESIUM SULFATE. [Concomitant]
     Active Substance: MAGNESIUM SULFATE
     Indication: MUSCLE SPASMS
     Dosage: 500 MILLIGRAM
     Route: 048
     Dates: start: 2016, end: 20201010
  20. FUROSEMIDE. [Concomitant]
     Active Substance: FUROSEMIDE
     Indication: OEDEMA PERIPHERAL
     Dosage: 80 MILLIGRAM
     Route: 065
     Dates: start: 20201014, end: 20201020
  21. METOPROLOL. [Concomitant]
     Active Substance: METOPROLOL
     Indication: ATRIAL FIBRILLATION
     Dosage: 12.5,25 MG
     Route: 048
     Dates: start: 20201012, end: 20201019
  22. PARACETAMOL [Concomitant]
     Active Substance: ACETAMINOPHEN
     Indication: FEBRILE NEUTROPENIA
     Route: 048
     Dates: start: 20201011, end: 20201021
  23. FUROSEMIDE. [Concomitant]
     Active Substance: FUROSEMIDE
     Indication: NEUTROPENIC SEPSIS
     Route: 048
     Dates: start: 2018, end: 20201010

REACTIONS (1)
  - Neutropenic sepsis [Not Recovered/Not Resolved]

NARRATIVE: CASE EVENT DATE: 20201011
